FAERS Safety Report 16369275 (Version 1)
Quarter: 2019Q2

REPORT INFORMATION
  Report Type: Other
  Country: PT (occurrence: PT)
  Receive Date: 20190529
  Receipt Date: 20190529
  Transmission Date: 20190711
  Serious: Yes (Hospitalization)
  Sender: FDA-Public Use
  Company Number: PT-B. BRAUN MEDICAL INC.-2067570

PATIENT
  Age: 56 Year
  Sex: Male

DRUGS (1)
  1. CEFAZOLIN FOR INJECTION USP AND DEXTROSE INJECTION USP 0264-3103-11 (N [Suspect]
     Active Substance: CEFAZOLIN
     Route: 042

REACTIONS (1)
  - Kounis syndrome [None]
